FAERS Safety Report 12453697 (Version 2)
Quarter: 2016Q2

REPORT INFORMATION
  Report Type: Spontaneous
  Country: BR (occurrence: BR)
  Receive Date: 20160609
  Receipt Date: 20160616
  Transmission Date: 20160815
  Serious: Yes (Other)
  Sender: FDA-Public Use
  Company Number: BR-ABBVIE-16P-020-1648138-00

PATIENT
  Sex: Male
  Weight: 58 kg

DRUGS (3)
  1. DEPAKENE [Suspect]
     Active Substance: VALPROIC ACID
     Indication: SYNCOPE
     Dosage: DAILY DOSE:500 MILLIGRAM BEFORE BEDTIME
     Route: 048
     Dates: start: 2001
  2. CLOMIPRAMINE HYDROCHLORIDE. [Concomitant]
     Active Substance: CLOMIPRAMINE HYDROCHLORIDE
     Indication: ANTIDEPRESSANT THERAPY
     Dosage: DAILY DOSE: 25 MILLIGRAM AT NIGHT
     Route: 048
     Dates: start: 1996
  3. CLONAZEPAM. [Concomitant]
     Active Substance: CLONAZEPAM
     Indication: SLEEP DISORDER
     Dosage: DAILY DOSE: 2 MILLIGRAM AT BEDTIME
     Route: 048
     Dates: start: 2001

REACTIONS (5)
  - Malaise [Not Recovered/Not Resolved]
  - Abdominal distension [Not Recovered/Not Resolved]
  - Diabetes mellitus [Unknown]
  - Product use issue [Unknown]
  - Depression [Unknown]

NARRATIVE: CASE EVENT DATE: 2001
